FAERS Safety Report 24531017 (Version 1)
Quarter: 2024Q4

REPORT INFORMATION
  Report Type: Spontaneous
  Country: GB (occurrence: GB)
  Receive Date: 20241021
  Receipt Date: 20241021
  Transmission Date: 20250114
  Serious: Yes (Other)
  Sender: GLAXOSMITHKLINE
  Company Number: None

PATIENT

DRUGS (1)
  1. SERETIDE [Suspect]
     Active Substance: FLUTICASONE PROPIONATE\SALMETEROL XINAFOATE
     Indication: Asthma
     Dosage: UNK UNK, BID (1 DOSE OF SERETIDE 100 TWICE A DAY)
     Route: 065

REACTIONS (6)
  - Loss of consciousness [Recovering/Resolving]
  - Muscle spasms [Recovering/Resolving]
  - Medication error [Unknown]
  - Middle insomnia [Recovering/Resolving]
  - Sleep disorder [Recovering/Resolving]
  - Pain [Recovering/Resolving]
